FAERS Safety Report 16132330 (Version 2)
Quarter: 2019Q2

REPORT INFORMATION
  Report Type: Spontaneous
  Country: US (occurrence: US)
  Receive Date: 20190329
  Receipt Date: 20190513
  Transmission Date: 20190711
  Serious: Yes (Hospitalization)
  Sender: FDA-Public Use
  Company Number: US-BRISTOL-MYERS SQUIBB COMPANY-BMS-2019-030734

PATIENT
  Sex: Female

DRUGS (1)
  1. SPRYCEL [Suspect]
     Active Substance: DASATINIB
     Indication: BONE MARROW TRANSPLANT
     Dosage: 100 MILLIGRAM, QD
     Route: 048
     Dates: start: 20170221

REACTIONS (2)
  - Product use in unapproved indication [Unknown]
  - Hospitalisation [Unknown]
